FAERS Safety Report 11211010 (Version 1)
Quarter: 2015Q2

REPORT INFORMATION
  Report Type: Spontaneous
  Country: BG (occurrence: BG)
  Receive Date: 20150623
  Receipt Date: 20150623
  Transmission Date: 20150821
  Serious: Yes (Hospitalization)
  Sender: FDA-Public Use
  Company Number: BG-ASTRAZENECA-2015SE60214

PATIENT
  Age: 66 Year
  Sex: Male
  Weight: 80 kg

DRUGS (10)
  1. BETALOC ZOK [Suspect]
     Active Substance: METOPROLOL SUCCINATE
     Route: 048
  2. ATORVASTATIN [Concomitant]
     Active Substance: ATORVASTATIN
  3. FUROSEMIDE. [Concomitant]
     Active Substance: FUROSEMIDE
  4. BRILIQUE [Suspect]
     Active Substance: TICAGRELOR
     Route: 048
  5. AMLODIN [Concomitant]
     Active Substance: AMLODIPINE BESYLATE
  6. ACETYLSALICYLIC ACID [Concomitant]
     Active Substance: ASPIRIN
  7. ROSUVASTATIN [Concomitant]
     Active Substance: ROSUVASTATIN
  8. HEPARIN [Concomitant]
     Active Substance: HEPARIN SODIUM
  9. FURANTHRI [Concomitant]
  10. ESOMEPRAZOLE [Concomitant]
     Active Substance: ESOMEPRAZOLE

REACTIONS (7)
  - Myocardial ischaemia [Unknown]
  - Cardiogenic shock [Unknown]
  - Coronary artery stenosis [Unknown]
  - Thrombosis in device [Unknown]
  - Angina unstable [Unknown]
  - Drug dose omission [Unknown]
  - Acute myocardial infarction [Unknown]
